FAERS Safety Report 8587023-6 (Version None)
Quarter: 2012Q3

REPORT INFORMATION
  Report Type: 
  Country: None (occurrence: None)
  Receive Date: 20120810
  Receipt Date: 20120801
  Transmission Date: 20120928
  Serious: No
  Sender: FDA-Public Use
  Company Number: US-ASTRAZENECA-2011SE57882

PATIENT
  Age: 65 Year
  Sex: Female

DRUGS (23)
  1. PLAVIX [Concomitant]
  2. LEVOTHYROXINE SODIUM [Concomitant]
  3. FUROSEMIDE [Concomitant]
  4. POTASSIUM CHLORIDE CRYS [Concomitant]
  5. MORPHINE SULFATE [Concomitant]
  6. NEURONTIN [Concomitant]
  7. FERROUS SULFATE TAB [Concomitant]
  8. ASPIRIN [Concomitant]
  9. ESTRADIOL [Concomitant]
  10. GLYBURIDE [Concomitant]
  11. ASMANEX TWISTHALER [Concomitant]
  12. RHINOCORT [Suspect]
     Route: 045
  13. OXYCONTIN [Concomitant]
  14. MYCELEX [Concomitant]
  15. LIPITOR [Concomitant]
  16. ZOLOFT [Concomitant]
  17. VITAMIN D [Concomitant]
  18. PERCOCET [Concomitant]
  19. PREMARIN [Concomitant]
  20. GLIMEPIRIDE [Concomitant]
  21. NEXIUM [Suspect]
     Route: 048
  22. ONDANSETRON HYDROCHLORIDE [Concomitant]
  23. ALPRAZOLAM [Concomitant]

REACTIONS (8)
  - PAIN [None]
  - DIABETIC FOOT [None]
  - DIABETIC VASCULAR DISORDER [None]
  - REGURGITATION [None]
  - HYPOKALAEMIA [None]
  - MALAISE [None]
  - DRUG DOSE OMISSION [None]
  - INSOMNIA [None]
